FAERS Safety Report 11433868 (Version 4)
Quarter: 2016Q4

REPORT INFORMATION
  Report Type: Spontaneous
  Country: CA (occurrence: CA)
  Receive Date: 20150831
  Receipt Date: 20161205
  Transmission Date: 20170206
  Serious: Yes (Hospitalization, Other)
  Sender: FDA-Public Use
  Company Number: CA-SHIRE-CA201510821

PATIENT
  Age: 6 Year
  Sex: Female
  Weight: 25.5 kg

DRUGS (7)
  1. CLONIDINE. [Concomitant]
     Active Substance: CLONIDINE
     Indication: MANIA
     Dosage: UNK, UNKNOWN
     Route: 065
     Dates: start: 20150805, end: 20150806
  2. INTUNIV [Suspect]
     Active Substance: GUANFACINE HYDROCHLORIDE
     Dosage: 1 MG, UNKNOWN
     Route: 048
     Dates: start: 20150724, end: 201508
  3. MELATONIN [Concomitant]
     Active Substance: MELATONIN
     Indication: PRODUCT USED FOR UNKNOWN INDICATION
     Dosage: 6 MG, 1X/DAY:QD (AT BEDTIME)
     Route: 065
  4. INTUNIV [Suspect]
     Active Substance: GUANFACINE HYDROCHLORIDE
     Indication: ATTENTION DEFICIT/HYPERACTIVITY DISORDER
     Dosage: 2 MG, 1X/DAY:QD
     Route: 048
     Dates: start: 201508, end: 201508
  5. INTUNIV [Suspect]
     Active Substance: GUANFACINE HYDROCHLORIDE
     Indication: DISTRACTIBILITY
     Dosage: 1 MG, 1X/DAY:QD
     Route: 048
     Dates: start: 201508, end: 20150805
  6. RISPERIDONE. [Concomitant]
     Active Substance: RISPERIDONE
     Indication: PRODUCT USED FOR UNKNOWN INDICATION
     Dosage: 0.25 MG, 1X/DAY:QD (AT NOON AND AT BEDTIME)
     Route: 065
  7. CLONIDINE. [Concomitant]
     Active Substance: CLONIDINE
     Indication: PRODUCT USED FOR UNKNOWN INDICATION
     Dosage: 0.05 MG, 1X/DAY:QD (QHS)
     Route: 065

REACTIONS (4)
  - Aggression [Unknown]
  - Bipolar disorder [Unknown]
  - Mania [Recovered/Resolved]
  - Drug-induced liver injury [Unknown]

NARRATIVE: CASE EVENT DATE: 201508
